FAERS Safety Report 5278181-X (Version None)
Quarter: 2007Q1

REPORT INFORMATION
  Report Type: 
  Country: None (occurrence: None)
  Receive Date: 20061213
  Receipt Date: 20060227
  Transmission Date: 20070707
  Serious: Yes (Hospitalization)
  Sender: FDA-Public Use
  Company Number: 2006UW03352

PATIENT
  Age: 57 Year
  Sex: Male
  Weight: 117.93 kg

DRUGS (17)
  1. SEROQUEL [Suspect]
     Dates: start: 20060201, end: 20060215
  2. MORPHINE [Concomitant]
  3. FUROSEMIDE [Concomitant]
  4. POTASSIUM ACETATE [Concomitant]
  5. ANDROGEL [Concomitant]
  6. EFFEXOR XR [Concomitant]
  7. WELLBUTRIN [Concomitant]
  8. PREVACID [Concomitant]
  9. OXYCONTIN [Concomitant]
  10. LYRICA [Concomitant]
  11. BACLOFEN [Concomitant]
  12. NEURONTIN [Concomitant]
  13. FLOMAX [Concomitant]
  14. ALPRAZOLAM [Concomitant]
  15. CLONAPIN [Concomitant]
  16. REGLAN [Concomitant]
  17. HYDROCODONE [Concomitant]

REACTIONS (1)
  - MYOCLONUS [None]
